FAERS Safety Report 19447335 (Version 2)
Quarter: 2021Q3

REPORT INFORMATION
  Report Type: Spontaneous
  Country: JP (occurrence: JP)
  Receive Date: 20210622
  Receipt Date: 20210707
  Transmission Date: 20211014
  Serious: Yes (Death, Other)
  Sender: FDA-Public Use
  Company Number: JP-EXELIXIS-CABO-21041615

PATIENT
  Age: 59 Year
  Sex: Male

DRUGS (3)
  1. CABOMETYX [Suspect]
     Active Substance: CABOZANTINIB S-MALATE
     Indication: RENAL CELL CARCINOMA
     Dosage: 20 MG, QD
     Route: 048
     Dates: start: 202101, end: 202101
  2. CABOMETYX [Suspect]
     Active Substance: CABOZANTINIB S-MALATE
     Indication: NEOPLASM
     Dosage: 60 MG, QD
     Route: 048
     Dates: start: 202009, end: 202010
  3. CABOMETYX [Suspect]
     Active Substance: CABOZANTINIB S-MALATE
     Indication: TUMOUR EMBOLISM
     Dosage: 40 MG, QD
     Route: 048
     Dates: start: 202010, end: 202101

REACTIONS (13)
  - Pneumonia [Unknown]
  - Device occlusion [Unknown]
  - Metastases to liver [Unknown]
  - Death [Fatal]
  - Condition aggravated [Unknown]
  - Palmar-plantar erythrodysaesthesia syndrome [Unknown]
  - Nausea [Unknown]
  - Cholangitis [Unknown]
  - Metastases to lymph nodes [Unknown]
  - Ascites [Unknown]
  - Hypothyroidism [Unknown]
  - Taste disorder [Unknown]
  - Decreased appetite [Unknown]

NARRATIVE: CASE EVENT DATE: 202010
